FAERS Safety Report 21234194 (Version 2)
Quarter: 2022Q3

REPORT INFORMATION
  Report Type: Report from Study
  Country: DE (occurrence: DE)
  Receive Date: 20220819
  Receipt Date: 20220929
  Transmission Date: 20221027
  Serious: Yes (Hospitalization)
  Sender: FDA-Public Use
  Company Number: DE-ABBVIE-22K-062-4509311-00

PATIENT
  Sex: Female

DRUGS (2)
  1. RINVOQ [Suspect]
     Active Substance: UPADACITINIB
     Indication: Psoriatic arthropathy
     Dosage: 15 MG
     Route: 048
     Dates: start: 202112
  2. CORTISONE [Concomitant]
     Active Substance: CORTISONE
     Indication: Asthma
     Dosage: SPRAY

REACTIONS (4)
  - Brain neoplasm [Not Recovered/Not Resolved]
  - Autoimmune disorder [Unknown]
  - Dizziness [Not Recovered/Not Resolved]
  - Balance disorder [Not Recovered/Not Resolved]

NARRATIVE: CASE EVENT DATE: 20220101
